FAERS Safety Report 19363902 (Version 1)
Quarter: 2021Q2

REPORT INFORMATION
  Report Type: Spontaneous
  Country: CH (occurrence: CH)
  Receive Date: 20210602
  Receipt Date: 20210602
  Transmission Date: 20210717
  Serious: Yes (Other)
  Sender: FDA-Public Use
  Company Number: CH-ROCHE-2837148

PATIENT
  Sex: Female
  Weight: 71.5 kg

DRUGS (2)
  1. MYCOPHENOLATE MOFETIL. [Suspect]
     Active Substance: MYCOPHENOLATE MOFETIL
     Indication: STEVENS-JOHNSON SYNDROME
     Route: 065
  2. AZATHIOPRIN [Suspect]
     Active Substance: AZATHIOPRINE
     Indication: STEVENS-JOHNSON SYNDROME
     Route: 065

REACTIONS (4)
  - Hypergammaglobulinaemia [Unknown]
  - Epistaxis [Unknown]
  - Aplastic anaemia [Unknown]
  - Rheumatoid factor increased [Unknown]
